FAERS Safety Report 16021807 (Version 2)
Quarter: 2019Q1

REPORT INFORMATION
  Report Type: Spontaneous
  Country: US (occurrence: US)
  Receive Date: 20190301
  Receipt Date: 20190313
  Transmission Date: 20190418
  Serious: No
  Sender: FDA-Public Use
  Company Number: US-BIOGEN-2019BI00702549

PATIENT
  Age: 36 Year
  Sex: Female

DRUGS (2)
  1. TECFIDERA [Suspect]
     Active Substance: DIMETHYL FUMARATE
     Indication: MULTIPLE SCLEROSIS
     Route: 050
     Dates: start: 20190219
  2. TECFIDERA [Suspect]
     Active Substance: DIMETHYL FUMARATE
     Route: 048
     Dates: start: 20190219

REACTIONS (6)
  - Dry skin [Unknown]
  - Burning sensation [Unknown]
  - Pruritus [Unknown]
  - Skin tightness [Unknown]
  - Swollen tongue [Unknown]
  - Flushing [Unknown]

NARRATIVE: CASE EVENT DATE: 20190221
